FAERS Safety Report 13798611 (Version 2)
Quarter: 2018Q1

REPORT INFORMATION
  Report Type: Spontaneous
  Country: US (occurrence: US)
  Receive Date: 20170727
  Receipt Date: 20180314
  Transmission Date: 20180508
  Serious: No
  Sender: FDA-Public Use
  Company Number: US-BIOGEN-2017BI00436202

PATIENT
  Sex: Female

DRUGS (1)
  1. AVONEX [Suspect]
     Active Substance: INTERFERON BETA-1A
     Indication: MULTIPLE SCLEROSIS
     Route: 030

REACTIONS (8)
  - Osteoarthritis [Unknown]
  - Influenza [Unknown]
  - Choking [Unknown]
  - Dizziness [Unknown]
  - Vision blurred [Unknown]
  - Injection site urticaria [Unknown]
  - Influenza like illness [Unknown]
  - Back pain [Unknown]
